FAERS Safety Report 12711963 (Version 3)
Quarter: 2016Q3

REPORT INFORMATION
  Report Type: Report from Study
  Country: AT (occurrence: AT)
  Receive Date: 20160902
  Receipt Date: 20160914
  Transmission Date: 20161109
  Serious: Yes (Life-Threatening, Hospitalization, Other)
  Sender: FDA-Public Use
  Company Number: PHHY2016AT059306

PATIENT
  Age: 66 Year
  Sex: Female

DRUGS (4)
  1. LETROZOLE. [Concomitant]
     Active Substance: LETROZOLE
     Indication: PRODUCT USED FOR UNKNOWN INDICATION
     Route: 065
  2. AFINITOR [Suspect]
     Active Substance: EVEROLIMUS
     Indication: BREAST CANCER
     Dosage: 5 MG, QD
     Route: 065
     Dates: start: 20160325
  3. AFINITOR [Suspect]
     Active Substance: EVEROLIMUS
     Dosage: 10 MG, QD
     Route: 065
  4. EXEMESTAN [Concomitant]
     Active Substance: EXEMESTANE
     Indication: BREAST CANCER
     Dosage: 25 MG, QD
     Route: 065
     Dates: start: 20160325

REACTIONS (35)
  - Anaemia [Recovered/Resolved]
  - Metastases to liver [Unknown]
  - Ulcer haemorrhage [Unknown]
  - Varicose vein [Unknown]
  - Decubitus ulcer [Recovering/Resolving]
  - Pleural effusion [Recovered/Resolved]
  - Malignant neoplasm progression [Unknown]
  - Metastases to central nervous system [Unknown]
  - Cholelithiasis [Unknown]
  - Ascites [Unknown]
  - Electrocardiogram abnormal [Unknown]
  - Melaena [Recovered/Resolved]
  - Mucosal haemorrhage [Unknown]
  - Muscular dystrophy [Unknown]
  - Stomatitis [Not Recovered/Not Resolved]
  - Atelectasis [Unknown]
  - Wound [Unknown]
  - Sinus tachycardia [Unknown]
  - Pneumothorax [Unknown]
  - Asthenia [Unknown]
  - Biliary dilatation [Unknown]
  - Cardiac failure [Recovered/Resolved]
  - Perineal pain [Unknown]
  - Hypokinesia [Unknown]
  - Blood potassium decreased [Unknown]
  - Metastases to lung [Unknown]
  - Perineal ulceration [Unknown]
  - Mucosal inflammation [Recovered/Resolved]
  - Pain [Unknown]
  - Oral candidiasis [Unknown]
  - Inflammatory marker increased [Unknown]
  - Pulmonary physical examination abnormal [Unknown]
  - Blood sodium decreased [Unknown]
  - Flatulence [Unknown]
  - Gastric ulcer [Recovered/Resolved]

NARRATIVE: CASE EVENT DATE: 20160425
